APPROVED DRUG PRODUCT: GLIPIZIDE
Active Ingredient: GLIPIZIDE
Strength: 5MG
Dosage Form/Route: TABLET, EXTENDED RELEASE;ORAL
Application: A202298 | Product #002
Applicant: PHARMOBEDIENT CONSULTING LLC
Approved: May 19, 2015 | RLD: No | RS: No | Type: DISCN